FAERS Safety Report 14160655 (Version 5)
Quarter: 2018Q4

REPORT INFORMATION
  Report Type: Spontaneous
  Country: JP (occurrence: JP)
  Receive Date: 20171106
  Receipt Date: 20181119
  Transmission Date: 20190204
  Serious: Yes (Death, Hospitalization, Other)
  Sender: FDA-Public Use
  Company Number: JP-ACTELION-A-CH2017-161786

PATIENT
  Age: 44 Year
  Sex: Female

DRUGS (9)
  1. BERASUS [Concomitant]
     Active Substance: BERAPROST SODIUM
  2. ADCIRCA [Concomitant]
     Active Substance: TADALAFIL
  3. OPSUMIT [Suspect]
     Active Substance: MACITENTAN
     Indication: PULMONARY ARTERIAL HYPERTENSION
     Dosage: 10 MG, QD
     Route: 048
     Dates: start: 20171129, end: 20180114
  4. OPSUMIT [Suspect]
     Active Substance: MACITENTAN
     Dosage: 10 MG, QD
     Route: 048
     Dates: start: 20161110, end: 20171024
  5. TRACLEER [Suspect]
     Active Substance: BOSENTAN
     Dosage: 125 MG, QD
     Route: 048
     Dates: start: 20171025, end: 20171129
  6. TRACLEER [Suspect]
     Active Substance: BOSENTAN
     Dosage: 125 MG, QD
     Route: 048
     Dates: end: 201611
  7. TRACLEER [Suspect]
     Active Substance: BOSENTAN
     Indication: PULMONARY ARTERIAL HYPERTENSION
     Dosage: 250 MG, QD
     Route: 048
  8. UPTRAVI [Concomitant]
     Active Substance: SELEXIPAG
  9. OXYGEN. [Concomitant]
     Active Substance: OXYGEN

REACTIONS (17)
  - Concomitant disease aggravated [Fatal]
  - Pericardial effusion [Recovering/Resolving]
  - Iron deficiency anaemia [Recovering/Resolving]
  - Alanine aminotransferase increased [Not Recovered/Not Resolved]
  - Blood creatine phosphokinase increased [Not Recovered/Not Resolved]
  - Haematocrit decreased [Recovering/Resolving]
  - Dermatomyositis [Fatal]
  - Condition aggravated [Recovering/Resolving]
  - Nausea [Recovered/Resolved]
  - Pulmonary hypertension [Recovering/Resolving]
  - Dizziness [Unknown]
  - Red blood cell count decreased [Recovering/Resolving]
  - Cardiac failure [Recovering/Resolving]
  - Hypothyroidism [Recovering/Resolving]
  - Hepatic enzyme increased [Not Recovered/Not Resolved]
  - Aspartate aminotransferase increased [Not Recovered/Not Resolved]
  - Haemoglobin decreased [Recovering/Resolving]

NARRATIVE: CASE EVENT DATE: 20161110
